FAERS Safety Report 12131190 (Version 2)
Quarter: 2016Q1

REPORT INFORMATION
  Report Type: Spontaneous
  Country: FR (occurrence: FR)
  Receive Date: 20160301
  Receipt Date: 20160303
  Transmission Date: 20160526
  Serious: Yes (Other)
  Sender: FDA-Public Use
  Company Number: FR-ASTRAZENECA-2016SE21297

PATIENT
  Age: 64 Year
  Sex: Male

DRUGS (4)
  1. TAHOR [Concomitant]
     Active Substance: ATORVASTATIN CALCIUM
  2. METFORMINE [Concomitant]
     Active Substance: METFORMIN HYDROCHLORIDE
  3. DIAMICRON [Concomitant]
     Active Substance: GLICLAZIDE
  4. BYDUREON [Suspect]
     Active Substance: EXENATIDE
     Indication: TYPE 2 DIABETES MELLITUS
     Route: 065
     Dates: start: 20160108

REACTIONS (3)
  - Lipase increased [Unknown]
  - Nausea [Unknown]
  - Diarrhoea [Unknown]

NARRATIVE: CASE EVENT DATE: 20160212
